FAERS Safety Report 8795361 (Version 2)
Quarter: 2013Q4

REPORT INFORMATION
  Report Type: Spontaneous
  Country: US (occurrence: US)
  Receive Date: 20120917
  Receipt Date: 20131031
  Transmission Date: 20140711
  Serious: Yes (Other)
  Sender: FDA-Public Use
  Company Number: US-009507513-1209USA003465

PATIENT
  Sex: Female

DRUGS (10)
  1. ISENTRESS [Suspect]
     Dosage: 400 MG, BID
     Route: 048
  2. CELSENTRI [Suspect]
     Dosage: 300 MG, BID
     Route: 048
  3. ZIAGEN [Suspect]
     Dosage: 300 MG, BID
     Route: 048
  4. EPIVIR [Suspect]
     Dosage: 150 MG, BID
  5. VIRAMUNE [Suspect]
     Route: 048
  6. KIVEXA [Suspect]
     Route: 048
  7. KEPPRA [Concomitant]
     Dosage: 1000 MG, TID
  8. LAMOTRIGINE [Concomitant]
     Dosage: 250 MG, QD
  9. TOPAMAX [Concomitant]
     Dosage: 50 MG, BID
  10. DECORTIN [Concomitant]
     Dosage: 7.5 MG, QD

REACTIONS (8)
  - Depression [Unknown]
  - Aggression [Unknown]
  - Abdominal distension [Unknown]
  - Lipids increased [Unknown]
  - Hepatic enzyme increased [Unknown]
  - Dizziness [Unknown]
  - Nervous system disorder [Unknown]
  - Balance disorder [Unknown]
